FAERS Safety Report 7731117-1 (Version None)
Quarter: 2011Q3

REPORT INFORMATION
  Report Type: 
  Country: None (occurrence: None)
  Receive Date: 20110906
  Receipt Date: 20110906
  Transmission Date: 20111222
  Serious: Yes (Death, Life-Threatening, Hospitalization, Disabling, Congenital Anomaly, Other)
  Sender: FDA-Public Use
  Company Number: None

PATIENT
  Age: 55 Year
  Sex: Female
  Weight: 68.038 kg

DRUGS (2)
  1. ENBREL [Suspect]
     Indication: RHEUMATOID ARTHRITIS
     Dosage: 50
     Route: 050
     Dates: start: 20100106, end: 20110811
  2. DOXYCYCL [Concomitant]
     Indication: EAR INFECTION
     Dosage: 100 MG
     Route: 048
     Dates: start: 20110518, end: 20110810

REACTIONS (14)
  - NASAL DISCOMFORT [None]
  - BLISTER [None]
  - OROPHARYNGEAL PAIN [None]
  - RASH [None]
  - SKIN EXFOLIATION [None]
  - SWOLLEN TONGUE [None]
  - BLOOD COUNT ABNORMAL [None]
  - HEADACHE [None]
  - PAIN [None]
  - PYREXIA [None]
  - BLOOD SODIUM DECREASED [None]
  - SLUGGISHNESS [None]
  - PROTEIN URINE PRESENT [None]
  - DIARRHOEA [None]
